FAERS Safety Report 22080715 (Version 1)
Quarter: 2023Q1

REPORT INFORMATION
  Report Type: Spontaneous
  Country: US (occurrence: US)
  Receive Date: 20230309
  Receipt Date: 20230309
  Transmission Date: 20230417
  Serious: No
  Sender: FDA-Public Use
  Company Number: US-GALDERMA-US2022000785

PATIENT

DRUGS (1)
  1. TRI-LUMA [Suspect]
     Active Substance: FLUOCINOLONE ACETONIDE\HYDROQUINONE\TRETINOIN
     Indication: Solar lentigo
     Dosage: 1 DOSAGE FORM, QD, 30 MINUTES BEFORE GOING TO BED
     Route: 061
     Dates: end: 202102

REACTIONS (3)
  - Erythema [Recovered/Resolved]
  - Therapeutic response unexpected [Recovered/Resolved]
  - Intentional product use issue [Recovered/Resolved]
